FAERS Safety Report 7178167-4 (Version None)
Quarter: 2010Q4

REPORT INFORMATION
  Report Type: 
  Country: None (occurrence: None)
  Receive Date: 20101220
  Receipt Date: 20101215
  Transmission Date: 20110411
  Serious: Yes (Other)
  Sender: FDA-Public Use
  Company Number: D0069755A

PATIENT
  Age: 45 Year
  Sex: Male

DRUGS (1)
  1. SULTANOL [Suspect]
     Route: 055

REACTIONS (5)
  - ARRHYTHMIA [None]
  - ATRIAL FIBRILLATION [None]
  - DRUG ABUSE [None]
  - OVERDOSE [None]
  - TACHYCARDIA [None]
